FAERS Safety Report 7272653-4 (Version None)
Quarter: 2011Q1

REPORT INFORMATION
  Report Type: 
  Country: None (occurrence: None)
  Receive Date: 20110203
  Receipt Date: 20110124
  Transmission Date: 20110831
  Serious: Yes (Hospitalization)
  Sender: FDA-Public Use
  Company Number: JP-AMGEN-KDC443096

PATIENT
  Age: 74 Year
  Sex: Male
  Weight: 62 kg

DRUGS (14)
  1. MECOBALAMIN [Concomitant]
     Dosage: UNK UNK, UNK
     Route: 048
  2. LIVALO [Concomitant]
     Route: 048
  3. GASMOTIN [Concomitant]
     Route: 048
  4. ASPIRIN [Concomitant]
     Route: 048
  5. LASIX [Concomitant]
     Route: 042
  6. GASTER D [Concomitant]
     Route: 048
  7. NORVASC [Concomitant]
     Route: 048
  8. PLAVIX [Concomitant]
     Route: 048
  9. LASIX [Concomitant]
     Route: 048
  10. DUROTEP MT PATCH [Concomitant]
     Dosage: UNK UNK, UNK
     Route: 062
  11. NIKORANMART [Concomitant]
     Dosage: UNK UNK, UNK
     Route: 048
  12. PANITUMUMAB [Suspect]
     Indication: COLORECTAL CANCER
     Dosage: 6 MG/KG, Q2WK
     Route: 041
     Dates: start: 20100729, end: 20100909
  13. DIOVAN [Concomitant]
     Route: 048
  14. MUCOSTA [Concomitant]
     Route: 048

REACTIONS (5)
  - PARONYCHIA [None]
  - TREMOR [None]
  - CHILLS [None]
  - VERTIGO [None]
  - DERMATITIS [None]
